FAERS Safety Report 8256062-7 (Version None)
Quarter: 2012Q2

REPORT INFORMATION
  Report Type: 
  Country: None (occurrence: None)
  Receive Date: 20120403
  Receipt Date: 20120326
  Transmission Date: 20120825
  Serious: Yes (Hospitalization, Other)
  Sender: FDA-Public Use
  Company Number: DE-JNJFOC-20120108069

PATIENT
  Age: 42 Year
  Sex: Female

DRUGS (6)
  1. METOPROLOL TARTRATE AND HYDROCHLOROTHIAZIDE [Concomitant]
     Route: 048
  2. CHLORPROTHIXEN [Concomitant]
     Route: 048
  3. SIMVASTATIN [Concomitant]
     Route: 048
  4. ZOPICLON [Concomitant]
     Route: 048
  5. VALDOXAN (AGOMELATINE) [Concomitant]
     Route: 048
  6. XEPLION [Suspect]
     Indication: SCHIZOPHRENIA, PARANOID TYPE
     Route: 030
     Dates: start: 20110501

REACTIONS (2)
  - PARAESTHESIA [None]
  - PSYCHOTIC DISORDER [None]
